FAERS Safety Report 15073762 (Version 1)
Quarter: 2018Q2

REPORT INFORMATION
  Report Type: Spontaneous
  Country: JP (occurrence: JP)
  Receive Date: 20180627
  Receipt Date: 20180627
  Transmission Date: 20180711
  Serious: Yes (Hospitalization, Other)
  Sender: FDA-Public Use
  Company Number: JP-ALEMBIC PHARMACUETICALS LIMITED-2018SCAL000438

PATIENT

DRUGS (2)
  1. CILOSTAZOL. [Suspect]
     Active Substance: CILOSTAZOL
     Indication: ARTERIOSCLEROSIS CORONARY ARTERY
     Dosage: 100 MILLIGRAM, QD
     Route: 048
  2. DULOXETINE DR CAPSULE [Suspect]
     Active Substance: DULOXETINE HYDROCHLORIDE
     Indication: OSTEOARTHRITIS
     Dosage: 40 MILLIGRAM, QD
     Route: 048

REACTIONS (4)
  - Ventricular fibrillation [Recovering/Resolving]
  - Long QT syndrome [Recovering/Resolving]
  - Loss of consciousness [Recovering/Resolving]
  - Electrocardiogram QT prolonged [Recovering/Resolving]
